FAERS Safety Report 18181576 (Version 1)
Quarter: 2020Q3

REPORT INFORMATION
  Report Type: Spontaneous
  Country: ES (occurrence: ES)
  Receive Date: 20200821
  Receipt Date: 20200821
  Transmission Date: 20201103
  Serious: Yes (Hospitalization)
  Sender: FDA-Public Use
  Company Number: ES-CADILA HEALTHCARE LIMITED-ES-ZYDUS-028187

PATIENT

DRUGS (7)
  1. TRAMADOL. [Suspect]
     Active Substance: TRAMADOL
     Indication: PRODUCT USED FOR UNKNOWN INDICATION
     Dosage: 50 MILLIGRAM,50MG, 1?1?1,(INTERVAL :8 HOURS)
     Route: 048
     Dates: start: 20170623, end: 20170701
  2. IXIA [Concomitant]
     Active Substance: OLMESARTAN MEDOXOMIL
     Dosage: 1?0?0
     Route: 048
     Dates: start: 20090101
  3. EUTIROX [Concomitant]
     Active Substance: LEVOTHYROXINE SODIUM
     Dosage: 1 CP DAY
     Route: 048
     Dates: start: 20090101
  4. HIDROFEROL [Suspect]
     Active Substance: CALCIFEDIOL
     Indication: PRODUCT USED FOR UNKNOWN INDICATION
     Dosage: .26 MILLIGRAM,1 A DAY (DOSAGE ERROR),(INTERVAL :24 HOURS)
     Route: 048
     Dates: start: 20170623, end: 20170701
  5. BISOPROLOL [Concomitant]
     Active Substance: BISOPROLOL
     Dosage: 1?0?0
     Route: 048
     Dates: start: 20090101
  6. ADIRO [Concomitant]
     Active Substance: ASPIRIN
     Dosage: 0?1?0
     Route: 048
     Dates: start: 20090101
  7. ATORVASTATIN [Concomitant]
     Active Substance: ATORVASTATIN
     Dosage: 40 MG DAY
     Route: 048
     Dates: start: 20090101

REACTIONS (6)
  - Hypercalcaemia [Recovered/Resolved]
  - Hypomagnesaemia [Recovered/Resolved with Sequelae]
  - Hypokalaemia [Recovered/Resolved with Sequelae]
  - Incorrect dose administered [Recovered/Resolved with Sequelae]
  - Confusional state [Recovered/Resolved]
  - Acute kidney injury [Recovered/Resolved with Sequelae]

NARRATIVE: CASE EVENT DATE: 20170623
